FAERS Safety Report 25763801 (Version 1)
Quarter: 2025Q3

REPORT INFORMATION
  Report Type: Spontaneous
  Country: US (occurrence: US)
  Receive Date: 20250905
  Receipt Date: 20250905
  Transmission Date: 20251021
  Serious: No
  Sender: DOMPE FARMACEUTICI
  Company Number: US-FARMAPROD-202412-4148

PATIENT
  Sex: Female

DRUGS (16)
  1. OXERVATE [Suspect]
     Active Substance: CENEGERMIN-BKBJ
     Indication: Neurotrophic keratopathy
     Route: 047
     Dates: start: 20241115
  2. IVERMECTIN [Concomitant]
     Active Substance: IVERMECTIN
  3. TYLENOL [Concomitant]
     Active Substance: ACETAMINOPHEN
  4. COENZYME Q-10 [Concomitant]
  5. VITAMIN D-400 [Concomitant]
  6. GLUCOSAMINE;CHONDROITIN [Concomitant]
  7. CALCIUM-MAGNESIUM-ZINC [Concomitant]
  8. VITAMINS [Concomitant]
     Active Substance: VITAMINS
  9. VITAMIN B COMPLEX [Concomitant]
     Active Substance: CYANOCOBALAMIN\DEXPANTHENOL\NIACINAMIDE\PYRIDOXINE HYDROCHLORIDE\RIBOFLAVIN 5^-PHOSPHATE SODIUM\THIA
  10. VITAMIN C [Concomitant]
     Active Substance: ASCORBIC ACID
  11. RESTASIS [Concomitant]
     Active Substance: CYCLOSPORINE
  12. GABAPENTIN [Concomitant]
     Active Substance: GABAPENTIN
  13. CELEBREX [Concomitant]
     Active Substance: CELECOXIB
  14. ATENOLOL [Concomitant]
     Active Substance: ATENOLOL
  15. ATORVASTATIN CALCIUM [Concomitant]
     Active Substance: ATORVASTATIN CALCIUM
  16. LEVOTHYROXINE SODIUM [Concomitant]
     Active Substance: LEVOTHYROXINE SODIUM

REACTIONS (1)
  - Eye pain [Not Recovered/Not Resolved]
